FAERS Safety Report 17487395 (Version 1)
Quarter: 2020Q1

REPORT INFORMATION
  Report Type: Spontaneous
  Country: DE (occurrence: DE)
  Receive Date: 20200303
  Receipt Date: 20200303
  Transmission Date: 20200409
  Serious: Yes (Other)
  Sender: FDA-Public Use
  Company Number: DE-BAUSCH-BL-2020-006006

PATIENT
  Sex: Male

DRUGS (3)
  1. TIMOLOL. [Suspect]
     Active Substance: TIMOLOL
     Indication: INTRAOCULAR PRESSURE DECREASED
     Route: 047
  2. ENAHEXAL [ENALAPRILAT] [Suspect]
     Active Substance: ENALAPRILAT
     Indication: PRODUCT USED FOR UNKNOWN INDICATION
     Route: 065
  3. LATANOPROST PFIZER [Suspect]
     Active Substance: LATANOPROST
     Indication: INTRAOCULAR PRESSURE DECREASED
     Route: 047

REACTIONS (1)
  - Cataract [Unknown]
